FAERS Safety Report 8328050-3 (Version None)
Quarter: 2012Q2

REPORT INFORMATION
  Report Type: 
  Country: None (occurrence: None)
  Receive Date: 20120502
  Receipt Date: 20120424
  Transmission Date: 20120825
  Serious: Yes (Hospitalization, Other)
  Sender: FDA-Public Use
  Company Number: PHHY2012BR008541

PATIENT
  Sex: Female

DRUGS (7)
  1. AMLODIPINE [Concomitant]
     Indication: HYPERTENSION
     Dosage: 10 MG, ONE TABLET A DAY
  2. SIMVASTATIN [Concomitant]
     Indication: BLOOD CHOLESTEROL ABNORMAL
     Dosage: 20 MG, ONE TABLET A DAY
     Route: 048
  3. COAL MEDICATION [Concomitant]
     Dosage: UNK UKN, UNK
  4. CEBALAT [Concomitant]
     Indication: HYPERTENSION
     Dosage: 50 MG, TWO TABLETS A DAY
     Route: 048
  5. DIOVAN [Suspect]
     Dosage: 160 MG, ONE TABLET DAILY
     Route: 048
     Dates: start: 20110101
  6. ATENOLOL [Concomitant]
     Indication: HYPERTENSION
     Dosage: 50 MG, ONE TABLET A DAY
     Route: 048
  7. DIOVAN [Suspect]
     Indication: HYPERTENSION
     Dosage: 320 MG, ONE TABLET DAILY

REACTIONS (10)
  - WOUND [None]
  - HYPERTENSION [None]
  - OEDEMA PERIPHERAL [None]
  - ARTHRALGIA [None]
  - OSTEOPOROSIS [None]
  - FLUID RETENTION [None]
  - CONDITION AGGRAVATED [None]
  - ERYTHEMA [None]
  - SKIN ULCER [None]
  - PRURITUS [None]
